FAERS Safety Report 8066924-1 (Version None)
Quarter: 2012Q1

REPORT INFORMATION
  Report Type: 
  Country: None (occurrence: None)
  Receive Date: 20120124
  Receipt Date: 20120116
  Transmission Date: 20120608
  Serious: Yes (Hospitalization, Other)
  Sender: FDA-Public Use
  Company Number: CA-PURDUE-CAN-2012-0002530

PATIENT
  Sex: Male

DRUGS (5)
  1. MORPHINE SULFATE [Suspect]
     Dosage: UNK, DAILY
     Route: 042
  2. ALCOHOL [Suspect]
     Indication: PRODUCT USED FOR UNKNOWN INDICATION
     Dosage: UNK
     Route: 065
  3. MORPHINE SULFATE [Suspect]
     Indication: INJURY
     Dosage: 13 CAPSL SINGLE
     Route: 048
  4. MORPHINE SULFATE [Suspect]
     Indication: PRODUCT USED FOR UNKNOWN INDICATION
  5. COCAINE [Suspect]
     Indication: PRODUCT USED FOR UNKNOWN INDICATION
     Dosage: DAILY
     Route: 042

REACTIONS (6)
  - DRUG DEPENDENCE [None]
  - SUBSTANCE ABUSE [None]
  - SUICIDE ATTEMPT [None]
  - SOCIAL AVOIDANT BEHAVIOUR [None]
  - FEELING OF DESPAIR [None]
  - RESPIRATORY ARREST [None]
